FAERS Safety Report 7362893-8 (Version None)
Quarter: 2011Q1

REPORT INFORMATION
  Report Type: 
  Country: None (occurrence: None)
  Receive Date: 20110321
  Receipt Date: 20110311
  Transmission Date: 20110831
  Serious: No
  Sender: FDA-Public Use
  Company Number: US-BIOGENIDEC-2011BI009598

PATIENT
  Age: 35 Year
  Sex: Female

DRUGS (2)
  1. TYSABRI [Suspect]
     Indication: MULTIPLE SCLEROSIS
     Route: 042
     Dates: start: 20070713, end: 20100617
  2. TYSABRI [Suspect]
     Route: 042
     Dates: start: 20110303

REACTIONS (5)
  - FALL [None]
  - HEADACHE [None]
  - FATIGUE [None]
  - BALANCE DISORDER [None]
  - HYPOAESTHESIA [None]
